FAERS Safety Report 12609296 (Version 11)
Quarter: 2017Q2

REPORT INFORMATION
  Report Type: Spontaneous
  Country: US (occurrence: US)
  Receive Date: 20160801
  Receipt Date: 20170426
  Transmission Date: 20170830
  Serious: Yes (Other)
  Sender: FDA-Public Use
  Company Number: PHHY2016US104593

PATIENT
  Sex: Female
  Weight: 101.59 kg

DRUGS (2)
  1. ZOFRAN [Suspect]
     Active Substance: ONDANSETRON HYDROCHLORIDE
     Indication: VOMITING IN PREGNANCY
     Route: 065
     Dates: start: 201107, end: 201108
  2. ONDANSETRON TEVA//ONDANSETRON [Suspect]
     Active Substance: ONDANSETRON
     Indication: VOMITING IN PREGNANCY
     Dosage: 8 MG, QD
     Route: 048
     Dates: start: 20110712, end: 20110830

REACTIONS (8)
  - Pancytopenia [Unknown]
  - Hypersensitivity [Unknown]
  - Anaphylactic reaction [Unknown]
  - Diplopia [Unknown]
  - Angioedema [Unknown]
  - Product use in unapproved indication [Unknown]
  - Maternal exposure during pregnancy [Unknown]
  - Emotional distress [Unknown]
